FAERS Safety Report 21816745 (Version 1)
Quarter: 2023Q1

REPORT INFORMATION
  Report Type: Spontaneous
  Country: GB (occurrence: GB)
  Receive Date: 20230104
  Receipt Date: 20230104
  Transmission Date: 20230417
  Serious: Yes (Other)
  Sender: FDA-Public Use
  Company Number: GB-MHRA-MED-202212300129398250-JTQYB

PATIENT
  Age: 28 Year
  Sex: Female
  Weight: 76 kg

DRUGS (1)
  1. DOXYCYCLINE [Suspect]
     Active Substance: DOXYCYCLINE
     Indication: Lower respiratory tract infection
     Dosage: 100 MILLIGRAM, QD (100MG ONCE A DAY)
     Route: 065
     Dates: start: 20221222, end: 20221226

REACTIONS (1)
  - Tension headache [Not Recovered/Not Resolved]

NARRATIVE: CASE EVENT DATE: 20221224
